FAERS Safety Report 13562418 (Version 1)
Quarter: 2017Q2

REPORT INFORMATION
  Report Type: Spontaneous
  Country: BR (occurrence: BR)
  Receive Date: 20170519
  Receipt Date: 20170519
  Transmission Date: 20170830
  Serious: Yes (Life-Threatening, Hospitalization, Disabling, Other)
  Sender: FDA-Public Use
  Company Number: BR-ASTRAZENECA-2017SE52714

PATIENT
  Age: 55 Year

DRUGS (2)
  1. ROSUVASTATIN. [Suspect]
     Active Substance: ROSUVASTATIN
     Route: 048
  2. CLOPIDOGREL [Concomitant]
     Active Substance: CLOPIDOGREL BISULFATE

REACTIONS (3)
  - Coronary artery disease [Unknown]
  - Cardio-respiratory arrest [Recovered/Resolved with Sequelae]
  - Depressed level of consciousness [Unknown]

NARRATIVE: CASE EVENT DATE: 20170414
